FAERS Safety Report 9722745 (Version 2)
Quarter: 2013Q4

REPORT INFORMATION
  Report Type: Spontaneous
  Country: US (occurrence: US)
  Receive Date: 20131202
  Receipt Date: 20131206
  Transmission Date: 20140711
  Serious: Yes (Hospitalization)
  Sender: FDA-Public Use
  Company Number: US-PFIZER INC-2013341191

PATIENT
  Age: 33 Year
  Sex: Male
  Weight: 150 kg

DRUGS (3)
  1. AMLODIPINE BESILATE [Suspect]
     Indication: HYPERTENSION
     Dosage: UNK
     Route: 065
  2. LISINOPRIL [Suspect]
     Indication: HYPERTENSION
     Dosage: UNK
     Route: 065
  3. METOPROLOL TARTRATE [Suspect]
     Indication: HYPERTENSION
     Dosage: UNK
     Route: 065

REACTIONS (8)
  - Type I hypersensitivity [Unknown]
  - Angioedema [Unknown]
  - Tonsillar hypertrophy [Unknown]
  - Adenoidal hypertrophy [Unknown]
  - Pharyngeal oedema [Unknown]
  - Odynophagia [Unknown]
  - Palatal oedema [Unknown]
  - Pharyngeal erythema [Unknown]
